FAERS Safety Report 7704168-0 (Version None)
Quarter: 2011Q3

REPORT INFORMATION
  Report Type: 
  Country: None (occurrence: None)
  Receive Date: 20110823
  Receipt Date: 20110808
  Transmission Date: 20111222
  Serious: Yes (Hospitalization, Other)
  Sender: FDA-Public Use
  Company Number: DE-ACTELION-A-US2011-52881

PATIENT

DRUGS (5)
  1. OXYGEN [Concomitant]
  2. TRACLEER [Concomitant]
     Indication: PULMONARY ARTERIAL HYPERTENSION
     Dosage: UNK
     Route: 048
     Dates: start: 20110601
  3. SILDENAFIL CITRATE [Concomitant]
  4. VENTAVIS [Suspect]
     Indication: PULMONARY ARTERIAL HYPERTENSION
     Dosage: 5 UG, Q4HR
     Route: 055
     Dates: start: 20080728
  5. SITAXSENTAN [Concomitant]

REACTIONS (4)
  - BRONCHITIS [None]
  - DIZZINESS [None]
  - DYSPNOEA [None]
  - PULMONARY ARTERIAL HYPERTENSION [None]
